FAERS Safety Report 5268796-7 (Version None)
Quarter: 2007Q1

REPORT INFORMATION
  Report Type: 
  Country: None (occurrence: None)
  Receive Date: 20070319
  Receipt Date: 20070307
  Transmission Date: 20070707
  Serious: Yes (Disabling)
  Sender: FDA-Public Use
  Company Number: PHRM2007FR01015

PATIENT
  Age: 80 Year
  Sex: Female
  Weight: 42 kg

DRUGS (3)
  1. ZOMETA [Suspect]
     Indication: METASTASES TO BONE
     Dosage: 4 MG EVERY THREE WEEKS
     Route: 042
     Dates: start: 20030213, end: 20040415
  2. RADIOTHERAPY [Concomitant]
     Indication: METASTASES TO BONE
     Dates: start: 20021001
  3. ARIMIDEX [Concomitant]
     Indication: BREAST CANCER METASTATIC

REACTIONS (9)
  - ABSCESS [None]
  - BONE FISTULA [None]
  - CELLULITIS [None]
  - DENTAL ALVEOLAR ANOMALY [None]
  - FACIAL PALSY [None]
  - HYPERBARIC OXYGEN THERAPY [None]
  - HYPOCALCAEMIA [None]
  - OSTEONECROSIS [None]
  - PURULENT DISCHARGE [None]
